FAERS Safety Report 16366329 (Version 2)
Quarter: 2019Q3

REPORT INFORMATION
  Report Type: Spontaneous
  Country: ES (occurrence: ES)
  Receive Date: 20190529
  Receipt Date: 20190805
  Transmission Date: 20191004
  Serious: Yes (Other)
  Sender: FDA-Public Use
  Company Number: ES-JNJFOC-20190530392

PATIENT

DRUGS (3)
  1. IMBRUVICA [Suspect]
     Active Substance: IBRUTINIB
     Indication: MANTLE CELL LYMPHOMA
     Route: 048
  2. IMBRUVICA [Suspect]
     Active Substance: IBRUTINIB
     Indication: WALDENSTROM^S MACROGLOBULINAEMIA
  3. IMBRUVICA [Suspect]
     Active Substance: IBRUTINIB
     Indication: CHRONIC LYMPHOCYTIC LEUKAEMIA

REACTIONS (9)
  - Arrhythmia supraventricular [Unknown]
  - Haemorrhage [Unknown]
  - Cytopenia [Unknown]
  - Diarrhoea [Unknown]
  - Lichenoid keratosis [Unknown]
  - Drug ineffective [Unknown]
  - Hypertension [Unknown]
  - Dyspepsia [Unknown]
  - Rash [Unknown]
